FAERS Safety Report 10626234 (Version 1)
Quarter: 2014Q4

REPORT INFORMATION
  Report Type: Spontaneous
  Country: DE (occurrence: DE)
  Receive Date: 20141204
  Receipt Date: 20141204
  Transmission Date: 20150529
  Serious: Yes (Other)
  Sender: FDA-Public Use
  Company Number: DE-WATSON-2014-25829

PATIENT
  Sex: Female

DRUGS (1)
  1. DEXAMETHASONE (UNKNOWN) [Suspect]
     Active Substance: DEXAMETHASONE
     Indication: NEONATAL RESPIRATORY DISTRESS SYNDROME
     Dosage: 0.05 MG/KG, DAILY
     Route: 065

REACTIONS (2)
  - Left ventricle outflow tract obstruction [Recovered/Resolved]
  - Hypertrophic cardiomyopathy [Unknown]
